FAERS Safety Report 9824901 (Version 5)
Quarter: 2014Q2

REPORT INFORMATION
  Report Type: Spontaneous
  Country: JP (occurrence: JP)
  Receive Date: 20140117
  Receipt Date: 20140414
  Transmission Date: 20141212
  Serious: Yes (Life-Threatening, Hospitalization)
  Sender: FDA-Public Use
  Company Number: JP-AMGEN-JPNSP2014003212

PATIENT
  Age: 83 Year
  Sex: Female
  Weight: 48 kg

DRUGS (10)
  1. ENBREL [Suspect]
     Indication: RHEUMATOID ARTHRITIS
     Dosage: 25 MG, 2X/WEEK
     Route: 058
     Dates: start: 20060608, end: 20100214
  2. ENBREL [Suspect]
     Dosage: 25 MG, WEEKLY
     Route: 058
     Dates: start: 20100215
  3. ENBREL [Suspect]
     Dosage: 25 MG EVERY OTHER WEEK
     Route: 058
     Dates: end: 20140107
  4. PROGRAF [Suspect]
     Indication: RHEUMATOID ARTHRITIS
     Dosage: 0.5 MG, 1X/DAY
     Route: 048
     Dates: start: 20081222
  5. RECALBON                           /06391801/ [Concomitant]
     Indication: OSTEOPOROSIS
     Dosage: 50 MG, MONTHLY
     Route: 048
     Dates: start: 20111004
  6. FEBURIC [Concomitant]
     Indication: HYPERURICAEMIA
     Dosage: 20 MG, 1X/DAY
     Route: 048
     Dates: start: 20130902
  7. CO DIOVAN [Concomitant]
     Indication: HYPERTENSION
     Dosage: 1 DF, 1X/DAY
     Route: 048
     Dates: start: 20090423
  8. ARICEPT [Concomitant]
     Indication: DEMENTIA ALZHEIMER^S TYPE
     Dosage: 10 MG, 1X/DAY
     Route: 048
     Dates: start: 20120609
  9. TALION                             /01587402/ [Concomitant]
     Dosage: UNK
  10. RABEPRAZOLE [Concomitant]
     Dosage: UNK

REACTIONS (1)
  - Cholangiocarcinoma [Not Recovered/Not Resolved]
